FAERS Safety Report 10249994 (Version 2)
Quarter: 2014Q2

REPORT INFORMATION
  Report Type: Spontaneous
  Country: BR (occurrence: BR)
  Receive Date: 20140620
  Receipt Date: 20140620
  Transmission Date: 20141212
  Serious: Yes (Life-Threatening)
  Sender: FDA-Public Use
  Company Number: BR-PFIZER INC-2014164085

PATIENT
  Age: 64 Year
  Sex: Female
  Weight: 82 kg

DRUGS (3)
  1. FELDENE SL [Suspect]
     Indication: PAIN IN EXTREMITY
     Dosage: ONE TABLET (20 MG), 2X/DAY (EVERY 12 HOURS)
     Route: 048
  2. TAMIRAM [Concomitant]
     Indication: WOUND
     Dosage: 500 MG, TWICE A DAY (EACH 12 HOURS)
  3. TAMIRAM [Concomitant]
     Indication: PAIN

REACTIONS (5)
  - Medication error [Unknown]
  - Dyspnoea [Not Recovered/Not Resolved]
  - Cardiac discomfort [Unknown]
  - Apparent death [Unknown]
  - Feeling abnormal [Unknown]
